FAERS Safety Report 6718210-7 (Version None)
Quarter: 2010Q2

REPORT INFORMATION
  Report Type: 
  Country: None (occurrence: None)
  Receive Date: 20100510
  Receipt Date: 20100430
  Transmission Date: 20101027
  Serious: Yes (Other)
  Sender: FDA-Public Use
  Company Number: JP-PFIZER INC-2010036505

PATIENT
  Age: 61 Year
  Sex: Female

DRUGS (1)
  1. AMLODIN [Suspect]
     Dosage: 5 MG, DAILY

REACTIONS (1)
  - PARKINSONISM [None]
